FAERS Safety Report 5188202-0 (Version None)
Quarter: 2006Q4

REPORT INFORMATION
  Report Type: 
  Country: None (occurrence: None)
  Receive Date: 20061221
  Receipt Date: 20061128
  Transmission Date: 20070319
  Serious: Yes (Other)
  Sender: FDA-Public Use
  Company Number: US-ROCHE-472859

PATIENT
  Age: 50 Year
  Sex: Female

DRUGS (2)
  1. INTERFERON ALFA [Suspect]
     Route: 058
  2. INTERFERON ALFA [Suspect]
     Dosage: APPROXIMATELY 6 WEEKS AFTER THE FIRST DOSE REGIMEN WAS STOPPED, THERAPY RESTARTED AT 8 MILLIONU DAI+
     Route: 058

REACTIONS (8)
  - ABDOMINAL PAIN [None]
  - ALOPECIA [None]
  - CHEST PAIN [None]
  - DIARRHOEA [None]
  - GRANULOMA SKIN [None]
  - HEADACHE [None]
  - SARCOIDOSIS [None]
  - SLEEP DISORDER [None]
